FAERS Safety Report 14706677 (Version 3)
Quarter: 2018Q2

REPORT INFORMATION
  Report Type: Report from Study
  Country: FR (occurrence: FR)
  Receive Date: 20180402
  Receipt Date: 20180604
  Transmission Date: 20180711
  Serious: Yes (Hospitalization, Other)
  Sender: FDA-Public Use
  Company Number: FR-SHIRE-FR201812182

PATIENT

DRUGS (6)
  1. PEGASPARGASE [Suspect]
     Active Substance: PEGASPARGASE
     Indication: ACUTE LYMPHOCYTIC LEUKAEMIA
     Dosage: 3150 IU, 1X/DAY:QD
     Route: 042
     Dates: start: 20180323, end: 20180323
  2. PREDNISONE. [Suspect]
     Active Substance: PREDNISONE
     Indication: ACUTE LYMPHOCYTIC LEUKAEMIA
     Dosage: 78 MG, 1X/DAY:QD
     Route: 048
     Dates: start: 20180308, end: 20180315
  3. PREDNISONE. [Suspect]
     Active Substance: PREDNISONE
     Dosage: 75 MG, 1X/DAY:QD
     Route: 048
     Dates: start: 20180315, end: 20180409
  4. VINCRISTINE [Suspect]
     Active Substance: VINCRISTINE
     Indication: ACUTE LYMPHOCYTIC LEUKAEMIA
     Dosage: 1.9 MG, 1X/DAY:QD
     Route: 042
     Dates: start: 20180315, end: 20180409
  5. METHOTREXATE. [Suspect]
     Active Substance: METHOTREXATE
     Indication: ACUTE LYMPHOCYTIC LEUKAEMIA
     Dosage: 15 MG, 1X/DAY:QD
     Route: 037
     Dates: start: 20180308, end: 20180404
  6. DAUNORUBICIN [Suspect]
     Active Substance: DAUNORUBICIN
     Indication: ACUTE LYMPHOCYTIC LEUKAEMIA
     Dosage: 37 MG, 1X/DAY:QD
     Route: 042
     Dates: start: 20180315, end: 20180409

REACTIONS (3)
  - Febrile bone marrow aplasia [Recovered/Resolved]
  - Clostridium difficile infection [Recovered/Resolved]
  - Sepsis [Recovered/Resolved]

NARRATIVE: CASE EVENT DATE: 20180319
